FAERS Safety Report 23198093 (Version 3)
Quarter: 2023Q4

REPORT INFORMATION
  Report Type: Report from Study
  Country: US (occurrence: US)
  Receive Date: 20231117
  Receipt Date: 20231127
  Transmission Date: 20240110
  Serious: Yes (Hospitalization, Other)
  Sender: FDA-Public Use
  Company Number: US-GILEAD-2023-0651532

PATIENT
  Sex: Female

DRUGS (4)
  1. AMBRISENTAN [Suspect]
     Active Substance: AMBRISENTAN
     Indication: Pulmonary arterial hypertension
     Dosage: 5 MG, QD
     Route: 048
     Dates: start: 20220323, end: 2022
  2. AMBRISENTAN [Suspect]
     Active Substance: AMBRISENTAN
     Indication: Pulmonary hypertension
  3. ELIQUIS [Concomitant]
     Active Substance: APIXABAN
  4. SILDENAFIL [Concomitant]
     Active Substance: SILDENAFIL

REACTIONS (9)
  - Dyspnoea [Unknown]
  - Heart rate increased [Unknown]
  - Acute respiratory failure [Unknown]
  - Hypertension [Unknown]
  - Diarrhoea [Unknown]
  - Decreased appetite [Unknown]
  - Dry mouth [Unknown]
  - Weight decreased [Unknown]
  - Dyspnoea exertional [Unknown]
